FAERS Safety Report 7798898-2 (Version None)
Quarter: 2011Q4

REPORT INFORMATION
  Report Type: 
  Country: None (occurrence: None)
  Receive Date: 20111005
  Receipt Date: 20111005
  Transmission Date: 20120403
  Serious: Yes (Hospitalization)
  Sender: FDA-Public Use
  Company Number: None

PATIENT
  Age: 38 Year
  Sex: Male
  Weight: 97.3 kg

DRUGS (1)
  1. SULFAMETHOXAZOLE AND TRIMETHOPRIM [Suspect]
     Indication: PROPHYLAXIS
     Dosage: 800/160 MG PO
     Route: 048
     Dates: start: 20080930

REACTIONS (4)
  - LIP ULCERATION [None]
  - STOMATITIS [None]
  - ODYNOPHAGIA [None]
  - PYREXIA [None]
